FAERS Safety Report 18584291 (Version 1)
Quarter: 2020Q4

REPORT INFORMATION
  Report Type: Spontaneous
  Country: US (occurrence: US)
  Receive Date: 20201207
  Receipt Date: 20201207
  Transmission Date: 20210114
  Serious: Yes (Other)
  Sender: FDA-Public Use
  Company Number: US-JNJFOC-20201152718

PATIENT
  Sex: Female

DRUGS (1)
  1. INVEGA [Suspect]
     Active Substance: PALIPERIDONE
     Indication: PRODUCT USED FOR UNKNOWN INDICATION
     Route: 048

REACTIONS (8)
  - Insomnia [Unknown]
  - Productive cough [Unknown]
  - Psychiatric symptom [Unknown]
  - Asphyxia [Unknown]
  - Secretion discharge [Unknown]
  - Oxygen saturation decreased [Unknown]
  - Polydipsia [Unknown]
  - Abnormal dreams [Unknown]
